FAERS Safety Report 5650566-9 (Version None)
Quarter: 2008Q1

REPORT INFORMATION
  Report Type: 
  Country: None (occurrence: None)
  Receive Date: 20080303
  Receipt Date: 20080219
  Transmission Date: 20080703
  Serious: Yes (Death)
  Sender: FDA-Public Use
  Company Number: 2007SP024238

PATIENT
  Age: 62 Year
  Weight: 65 kg

DRUGS (6)
  1. NOXAFIL [Suspect]
     Indication: ZYGOMYCOSIS
     Dosage: 10 ML; BID; PO
     Route: 048
     Dates: start: 20071026, end: 20071125
  2. AMBISOME [Suspect]
     Indication: ZYGOMYCOSIS
     Dosage: 7 MG/KG;QD;IV
     Route: 042
     Dates: start: 20071018
  3. ZOVIRAX [Concomitant]
  4. LOSEC I.V. [Concomitant]
  5. THEOPHYLLINE [Concomitant]
  6. MEDROL [Concomitant]

REACTIONS (5)
  - BLOOD ALKALINE PHOSPHATASE INCREASED [None]
  - GAMMA-GLUTAMYLTRANSFERASE INCREASED [None]
  - HEPATOTOXICITY [None]
  - MYOCARDIAL INFARCTION [None]
  - RESPIRATORY FAILURE [None]
